FAERS Safety Report 8969612 (Version 1)
Quarter: 2012Q4

REPORT INFORMATION
  Report Type: 
  Country: US (occurrence: US)
  Receive Date: 20121218
  Receipt Date: 20121218
  Transmission Date: 20130627
  Serious: Yes (Other)
  Sender: FDA-Public Use
  Company Number: US-BRISTOL-MYERS SQUIBB COMPANY-16272882

PATIENT
  Age: 16 Year
  Sex: Female

DRUGS (2)
  1. ABILIFY [Suspect]
     Indication: DEPRESSION
     Dates: start: 201112
  2. CITALOPRAM [Suspect]
     Indication: DEPRESSION

REACTIONS (2)
  - Self injurious behaviour [Unknown]
  - Suicidal ideation [Unknown]
